FAERS Safety Report 15673282 (Version 2)
Quarter: 2018Q4

REPORT INFORMATION
  Report Type: Spontaneous
  Country: US (occurrence: US)
  Receive Date: 20181129
  Receipt Date: 20181226
  Transmission Date: 20190205
  Serious: No
  Sender: FDA-Public Use
  Company Number: US-PFIZER INC-2018029185

PATIENT
  Sex: Female

DRUGS (1)
  1. LORBRENA [Suspect]
     Active Substance: LORLATINIB
     Indication: ANAPLASTIC LYMPHOMA KINASE GENE MUTATION
     Dosage: UNK

REACTIONS (6)
  - Amnesia [Recovering/Resolving]
  - Blood cholesterol increased [Unknown]
  - Aphasia [Recovering/Resolving]
  - Weight increased [Unknown]
  - Neoplasm progression [Unknown]
  - Cognitive disorder [Recovering/Resolving]
